FAERS Safety Report 21560939 (Version 2)
Quarter: 2022Q4

REPORT INFORMATION
  Report Type: Report from Study
  Country: US (occurrence: US)
  Receive Date: 20221107
  Receipt Date: 20221107
  Transmission Date: 20230113
  Serious: No
  Sender: FDA-Public Use
  Company Number: US-ABBVIE-4135219

PATIENT
  Age: 57 Year
  Sex: Female

DRUGS (3)
  1. HUMIRA [Suspect]
     Active Substance: ADALIMUMAB
     Indication: Psoriasis
     Dosage: CITRATE FREE
     Route: 058
  2. Johnson + Johnson [Concomitant]
     Indication: COVID-19 immunisation
     Dosage: 1ST DOSE,1 IN ONCE
     Route: 030
     Dates: start: 20210307, end: 20210307
  3. Moderna [Concomitant]
     Indication: COVID-19 immunisation
     Dosage: 3RD DOSE: 1 IN ONCE
     Route: 030
     Dates: start: 20220208, end: 20220208

REACTIONS (2)
  - COVID-19 [Recovered/Resolved]
  - Sinusitis [Unknown]

NARRATIVE: CASE EVENT DATE: 20211201
